FAERS Safety Report 23954374 (Version 1)
Quarter: 2024Q2

REPORT INFORMATION
  Report Type: Spontaneous
  Country: US (occurrence: None)
  Receive Date: 20240609
  Receipt Date: 20240609
  Transmission Date: 20240716
  Serious: No
  Sender: FDA-Public Use
  Company Number: US-ROCHE-3510897

PATIENT

DRUGS (2)
  1. TECENTRIQ [Suspect]
     Active Substance: ATEZOLIZUMAB
     Indication: Hepatocellular carcinoma
     Dosage: RECEIVED CYCLE 4 DAY 1
     Route: 041
     Dates: start: 20231107
  2. ZIRABEV [Suspect]
     Active Substance: BEVACIZUMAB-BVZR
     Indication: Hepatocellular carcinoma
     Dosage: RECEIVED CYCLE 4 DAY 1
     Route: 042
     Dates: start: 20231107

REACTIONS (1)
  - Platelet count decreased [Unknown]
